FAERS Safety Report 7500853-4 (Version None)
Quarter: 2011Q2

REPORT INFORMATION
  Report Type: 
  Country: None (occurrence: None)
  Receive Date: 20110524
  Receipt Date: 20110516
  Transmission Date: 20111010
  Serious: Yes (Other)
  Sender: FDA-Public Use
  Company Number: A0927532A

PATIENT
  Age: 34 Year
  Sex: Male

DRUGS (2)
  1. LAMICTAL [Suspect]
     Indication: EPILEPSY
     Dosage: 150MG TWICE PER DAY
     Route: 048
     Dates: start: 20080101
  2. ANTIBIOTICS [Concomitant]

REACTIONS (5)
  - ATAXIA [None]
  - SWELLING FACE [None]
  - PSORIASIS [None]
  - SKIN DISCOLOURATION [None]
  - DIZZINESS [None]
